FAERS Safety Report 8433800-1 (Version None)
Quarter: 2012Q2

REPORT INFORMATION
  Report Type: 
  Country: None (occurrence: None)
  Receive Date: 20120613
  Receipt Date: 20120612
  Transmission Date: 20120825
  Serious: Yes (Death, Other)
  Sender: FDA-Public Use
  Company Number: US-PFIZER INC-2012085402

PATIENT
  Sex: Male

DRUGS (1)
  1. VFEND [Suspect]
     Indication: BLASTOMYCOSIS
     Dosage: 200 MG, 2X/DAY
     Route: 048
     Dates: start: 20120313, end: 20120501

REACTIONS (3)
  - DEATH [None]
  - CEREBROVASCULAR ACCIDENT [None]
  - MALAISE [None]
